FAERS Safety Report 4269491-3 (Version None)
Quarter: 2004Q1

REPORT INFORMATION
  Report Type: 
  Country: None (occurrence: None)
  Receive Date: 20040112
  Receipt Date: 20031226
  Transmission Date: 20041129
  Serious: Yes (Hospitalization)
  Sender: FDA-Public Use
  Company Number: 200323145GDDC

PATIENT
  Age: 58 Year
  Sex: Female

DRUGS (6)
  1. INDAPAMIDE [Suspect]
     Indication: ESSENTIAL HYPERTENSION
     Dosage: 1.5 MG/DAY PO
     Route: 048
     Dates: start: 20030525, end: 20030622
  2. ATENOLOL [Concomitant]
  3. ZYPREXA [Concomitant]
  4. THIAMINE [Concomitant]
  5. FERROUS SULFATE EXSICCATED (FERROGRAD) [Concomitant]
  6. VITAMIN B COMPLEX CAP [Concomitant]

REACTIONS (7)
  - ACUTE PSYCHOSIS [None]
  - DECREASED APPETITE [None]
  - DIZZINESS [None]
  - HYPONATRAEMIA [None]
  - MALAISE [None]
  - NAUSEA [None]
  - VOMITING [None]
